FAERS Safety Report 12690840 (Version 1)
Quarter: 2016Q3

REPORT INFORMATION
  Report Type: Spontaneous
  Country: US (occurrence: US)
  Receive Date: 20160826
  Receipt Date: 20160826
  Transmission Date: 20161109
  Serious: No
  Sender: FDA-Public Use
  Company Number: US-TARO-2016TAR00460

PATIENT
  Age: 49 Year
  Sex: Male
  Weight: 74.38 kg

DRUGS (17)
  1. KEVEYIS [Suspect]
     Active Substance: DICHLORPHENAMIDE
     Indication: FAMILIAL PERIODIC PARALYSIS
     Dosage: 50 MG, 2X/DAY
     Route: 048
     Dates: start: 20151230, end: 201601
  2. CLONAZEPAM. [Concomitant]
     Active Substance: CLONAZEPAM
     Dosage: 25 MG, 1X/DAY
  3. VENLAFAXINE HYDROCHLORIDE. [Concomitant]
     Active Substance: VENLAFAXINE HYDROCHLORIDE
     Dosage: 75 MG, 4X/DAY
  4. CLARITIN [Concomitant]
     Active Substance: LORATADINE
     Dosage: 10 MG, 1X/DAY
  5. SIMVASTATIN. [Concomitant]
     Active Substance: SIMVASTATIN
     Dosage: 20 MG, UNK
  6. SPIRONOLACTONE. [Concomitant]
     Active Substance: SPIRONOLACTONE
     Dosage: 25 MG, 3X/DAY
  7. MEXILETINE HYDROCHLORIDE. [Concomitant]
     Active Substance: MEXILETINE HYDROCHLORIDE
     Dosage: 200 MG, 2X/DAY
  8. TESTIM [Concomitant]
     Active Substance: TESTOSTERONE
  9. KEVEYIS [Suspect]
     Active Substance: DICHLORPHENAMIDE
     Dosage: 50 MG, 1X/DAY
     Route: 048
     Dates: start: 2016, end: 2016
  10. ARMODAFINIL. [Concomitant]
     Active Substance: ARMODAFINIL
     Dosage: 50 MG, 5X/WEEK
     Dates: start: 201511
  11. KLOR-CON [Concomitant]
     Active Substance: POTASSIUM CHLORIDE
     Dosage: UNK, 4X/DAY
  12. PANTOPRAZOLE SODIUM. [Concomitant]
     Active Substance: PANTOPRAZOLE SODIUM
     Dosage: 30 MG, 1X/DAY
  13. FLUTICASONE PROPIONATE. [Concomitant]
     Active Substance: FLUTICASONE PROPIONATE
  14. MULTIVITAMIN [Concomitant]
     Active Substance: VITAMINS
  15. KEVEYIS [Suspect]
     Active Substance: DICHLORPHENAMIDE
     Dosage: 50 MG, 2X/DAY
     Route: 048
     Dates: start: 2016
  16. KLOR-CON EF [Concomitant]
     Active Substance: POTASSIUM BICARBONATE\POTASSIUM CITRATE
     Dosage: UNK, AS NEEDED
  17. ALPRAZOLAM. [Concomitant]
     Active Substance: ALPRAZOLAM
     Dosage: 25 MG, UP TO 3X/DAY

REACTIONS (2)
  - Mental impairment [Not Recovered/Not Resolved]
  - Somnolence [Recovered/Resolved]

NARRATIVE: CASE EVENT DATE: 201601
